FAERS Safety Report 10253834 (Version 1)
Quarter: 2014Q2

REPORT INFORMATION
  Report Type: Spontaneous
  Country: IL (occurrence: IL)
  Receive Date: 20140623
  Receipt Date: 20140623
  Transmission Date: 20141212
  Serious: Yes (Hospitalization, Other)
  Sender: FDA-Public Use
  Company Number: IL-ABBVIE-14P-082-1249559-00

PATIENT
  Age: 84 Year
  Sex: Female

DRUGS (7)
  1. HUMIRA [Suspect]
     Indication: CROHN^S DISEASE
     Route: 058
     Dates: start: 20091014, end: 201404
  2. HUMIRA [Suspect]
     Dates: start: 201406
  3. COUMADIN [Concomitant]
     Indication: PRODUCT USED FOR UNKNOWN INDICATION
  4. AVASTIN [Concomitant]
     Indication: RETINAL VASCULAR DISORDER
  5. GASTRO [Concomitant]
     Indication: PRODUCT USED FOR UNKNOWN INDICATION
  6. PREDNISONE [Concomitant]
     Indication: PRODUCT USED FOR UNKNOWN INDICATION
     Dosage: STARTED WITH 60MG AND DECREASED
  7. PREDNISONE [Concomitant]

REACTIONS (9)
  - Intestinal obstruction [Unknown]
  - Abdominal pain [Recovering/Resolving]
  - Pyrexia [Recovering/Resolving]
  - Bacterial infection [Recovering/Resolving]
  - Crohn^s disease [Unknown]
  - Stent placement [Unknown]
  - Constipation [Unknown]
  - Diarrhoea [Unknown]
  - Pain [Unknown]
